FAERS Safety Report 4400957-9 (Version None)
Quarter: 2004Q3

REPORT INFORMATION
  Report Type: 
  Country: None (occurrence: None)
  Receive Date: 20040907
  Receipt Date: 20030826
  Transmission Date: 20050211
  Serious: Yes (Other)
  Sender: FDA-Public Use
  Company Number: US-BRISTOL-MYERS SQUIBB COMPANY-12365995

PATIENT
  Age: 61 Year
  Sex: Female
  Weight: 109 kg

DRUGS (3)
  1. COUMADIN [Suspect]
     Indication: CARDIAC OPERATION
     Route: 048
  2. OSTEO BI-FLEX [Concomitant]
  3. DYAZIDE [Concomitant]

REACTIONS (2)
  - HAEMORRHAGE [None]
  - JOINT INJURY [None]
